FAERS Safety Report 7044478-6 (Version None)
Quarter: 2010Q4

REPORT INFORMATION
  Report Type: 
  Country: None (occurrence: None)
  Receive Date: 20101014
  Receipt Date: 20101006
  Transmission Date: 20110411
  Serious: Yes (Life-Threatening, Hospitalization)
  Sender: FDA-Public Use
  Company Number: US-US-EMD SERONO, INC.-7020428

PATIENT
  Sex: Female
  Weight: 61 kg

DRUGS (9)
  1. REBIF [Suspect]
     Indication: MULTIPLE SCLEROSIS
     Route: 058
     Dates: start: 20100804
  2. KEPPRA [Concomitant]
     Indication: EPILEPSY
     Dates: start: 20100101
  3. TOPAMAX [Concomitant]
     Indication: MIGRAINE
  4. KLONOPIN [Concomitant]
     Indication: NARCOLEPSY
  5. OXYCODONE HCL [Concomitant]
     Indication: FIBROMYALGIA
     Dates: start: 20060101
  6. LITHIUM [Concomitant]
     Indication: BIPOLAR DISORDER
     Dates: start: 20090401
  7. ZANAFLEX [Concomitant]
     Indication: MUSCLE RELAXANT THERAPY
     Dates: start: 20090101
  8. PHENERGAN [Concomitant]
     Indication: NAUSEA
     Dates: start: 20070101
  9. PHENERGAN [Concomitant]
     Indication: GASTRITIS

REACTIONS (12)
  - ABDOMINAL PAIN [None]
  - BRADYCARDIA [None]
  - CHEST PAIN [None]
  - HYPOAESTHESIA [None]
  - HYPOTENSION [None]
  - INJECTION SITE PAIN [None]
  - LETHARGY [None]
  - LOSS OF CONSCIOUSNESS [None]
  - RED BLOOD CELL COUNT DECREASED [None]
  - RESPIRATORY ARREST [None]
  - SENSATION OF HEAVINESS [None]
  - WHITE BLOOD CELL COUNT DECREASED [None]
